FAERS Safety Report 20405713 (Version 1)
Quarter: 2022Q1

REPORT INFORMATION
  Report Type: Spontaneous
  Country: US (occurrence: None)
  Receive Date: 20220130
  Receipt Date: 20220130
  Transmission Date: 20220423
  Serious: Yes (unspecified)
  Sender: FDA-Public Use
  Company Number: None

PATIENT
  Age: 39 Year
  Sex: Female
  Weight: 95.4 kg

DRUGS (2)
  1. CITALOPRAM [Suspect]
     Active Substance: CITALOPRAM HYDROBROMIDE
     Indication: Depression
     Route: 048
     Dates: start: 20220129, end: 20220130
  2. CITALOPRAM [Suspect]
     Active Substance: CITALOPRAM HYDROBROMIDE
     Indication: Anxiety

REACTIONS (3)
  - Chest pain [None]
  - Back pain [None]
  - Dyspnoea [None]

NARRATIVE: CASE EVENT DATE: 20220129
